FAERS Safety Report 8138305-3 (Version None)
Quarter: 2012Q1

REPORT INFORMATION
  Report Type: 
  Country: None (occurrence: None)
  Receive Date: 20120213
  Receipt Date: 20120130
  Transmission Date: 20120608
  Serious: Yes (Other)
  Sender: FDA-Public Use
  Company Number: 2012SP007128

PATIENT
  Age: 46 Year
  Sex: Male
  Weight: 100 kg

DRUGS (1)
  1. SYCREST (ASENAPINE) (5 MG) [Suspect]
     Indication: BIPOLAR I DISORDER
     Dosage: 2 DF; QD;
     Dates: start: 20120110, end: 20120129

REACTIONS (4)
  - BLOOD GLUCOSE INCREASED [None]
  - HEART RATE INCREASED [None]
  - MOOD SWINGS [None]
  - SUICIDAL IDEATION [None]
